FAERS Safety Report 9995386 (Version 2)
Quarter: 2014Q1

REPORT INFORMATION
  Report Type: Spontaneous
  Country: FR (occurrence: FR)
  Receive Date: 20140311
  Receipt Date: 20140311
  Transmission Date: 20141002
  Serious: Yes (Other)
  Sender: FDA-Public Use
  Company Number: FR-ASTELLAS-2014EU001344

PATIENT
  Sex: Male
  Weight: 85 kg

DRUGS (7)
  1. VESICARE [Suspect]
     Indication: MICTURITION URGENCY
     Dosage: 5 MG, UID/QD
     Route: 048
  2. TRIPTORELIN [Concomitant]
     Dosage: UNK
     Route: 065
  3. TENORMINE [Concomitant]
     Dosage: 500 MG, BID
     Route: 048
  4. RASILEZ [Concomitant]
     Dosage: UNK
     Route: 065
  5. ZANIDIP [Concomitant]
     Dosage: UNK
     Route: 065
  6. TEMESTA                            /00273201/ [Concomitant]
     Dosage: 2.5 MG, UNKNOWN/D
     Route: 065
  7. STILNOX [Concomitant]
     Dosage: UNK
     Route: 065

REACTIONS (5)
  - Motor dysfunction [Recovered/Resolved]
  - Fall [Recovered/Resolved]
  - Vertigo [Unknown]
  - Constipation [Recovered/Resolved]
  - Dry mouth [Recovered/Resolved]
